FAERS Safety Report 9147682 (Version 2)
Quarter: 2013Q1

REPORT INFORMATION
  Report Type: Spontaneous
  Country: JP (occurrence: JP)
  Receive Date: 20130307
  Receipt Date: 20130319
  Transmission Date: 20140127
  Serious: Yes (Death, Life-Threatening)
  Sender: FDA-Public Use
  Company Number: JP-BAXTER-2013BAX004891

PATIENT
  Age: 63 Year
  Sex: Female

DRUGS (26)
  1. ENDOXAN [Suspect]
     Indication: HISTIOCYTOSIS HAEMATOPHAGIC
     Route: 041
     Dates: start: 20110118
  2. ENDOXAN [Suspect]
     Route: 041
     Dates: start: 20110207
  3. ENDOXAN [Suspect]
     Route: 041
     Dates: start: 20110228
  4. ENDOXAN [Suspect]
     Route: 041
     Dates: start: 20110322
  5. ENDOXAN [Suspect]
     Route: 041
     Dates: start: 20110509, end: 20110510
  6. RITUXAN [Suspect]
     Indication: HISTIOCYTOSIS HAEMATOPHAGIC
     Route: 041
     Dates: start: 20110117
  7. RITUXAN [Suspect]
     Route: 041
     Dates: start: 20110207
  8. RITUXAN [Suspect]
     Route: 041
     Dates: start: 20110228
  9. RITUXAN [Suspect]
     Route: 041
     Dates: start: 20110322
  10. RITUXAN [Suspect]
     Route: 041
     Dates: start: 20110509
  11. ADRIACIN [Suspect]
     Indication: HISTIOCYTOSIS HAEMATOPHAGIC
     Route: 041
     Dates: start: 20110118
  12. ADRIACIN [Suspect]
     Route: 041
     Dates: start: 20110207
  13. ADRIACIN [Suspect]
     Route: 041
     Dates: start: 20110228
  14. ADRIACIN [Suspect]
     Route: 041
     Dates: start: 20110322
  15. ADRIACIN [Suspect]
     Route: 041
     Dates: start: 20110509
  16. ONCOVIN [Suspect]
     Indication: HISTIOCYTOSIS HAEMATOPHAGIC
     Route: 042
     Dates: start: 20110207
  17. ONCOVIN [Suspect]
     Route: 042
     Dates: start: 20110228
  18. ONCOVIN [Suspect]
     Route: 042
     Dates: start: 20110322
  19. ONCOVIN [Suspect]
     Route: 042
     Dates: start: 20110509
  20. ONCOVIN [Suspect]
     Route: 042
     Dates: start: 20110118
  21. PREDONINE [Suspect]
     Indication: HISTIOCYTOSIS HAEMATOPHAGIC
     Route: 048
     Dates: start: 20110207
  22. PREDONINE [Suspect]
     Route: 048
     Dates: start: 20110228
  23. PREDONINE [Suspect]
     Route: 048
     Dates: start: 20110322
  24. PREDONINE [Suspect]
     Route: 048
     Dates: start: 20110509
  25. PREDONINE [Suspect]
     Route: 048
     Dates: start: 20110118
  26. BAKTAR [Suspect]
     Indication: PROPHYLAXIS
     Route: 065
     Dates: start: 20110202, end: 20110204

REACTIONS (4)
  - Adult T-cell lymphoma/leukaemia [Fatal]
  - Febrile neutropenia [Recovered/Resolved]
  - Drug eruption [Unknown]
  - Multi-organ failure [Fatal]
